FAERS Safety Report 5380899-5 (Version None)
Quarter: 2007Q3

REPORT INFORMATION
  Report Type: 
  Country: None (occurrence: None)
  Receive Date: 20070706
  Receipt Date: 20070625
  Transmission Date: 20080115
  Serious: Yes (Hospitalization)
  Sender: FDA-Public Use
  Company Number: US-BRISTOL-MYERS SQUIBB COMPANY-13827191

PATIENT
  Age: 50 Year
  Sex: Male

DRUGS (2)
  1. APIXABAN [Suspect]
     Indication: ACUTE CORONARY SYNDROME
  2. BLINDED: PLACEBO [Suspect]

REACTIONS (2)
  - GASTROINTESTINAL HAEMORRHAGE [None]
  - VENOUS THROMBOSIS [None]
